FAERS Safety Report 5347879-7 (Version None)
Quarter: 2007Q2

REPORT INFORMATION
  Report Type: 
  Country: None (occurrence: None)
  Receive Date: 20070606
  Receipt Date: 20070530
  Transmission Date: 20071010
  Serious: Yes (Other)
  Sender: FDA-Public Use
  Company Number: US-MERCK-0704USA03105

PATIENT
  Age: 44 Year
  Sex: Male
  Weight: 143 kg

DRUGS (5)
  1. JANUVIA [Suspect]
     Indication: DIABETES MELLITUS NON-INSULIN-DEPENDENT
     Route: 048
     Dates: start: 20070401, end: 20070415
  2. JANUVIA [Suspect]
     Route: 048
     Dates: start: 20070518
  3. LOPID [Concomitant]
     Route: 065
     Dates: end: 20070101
  4. [THERAPY UNSPECIFIED] [Concomitant]
     Route: 065
  5. ENALAPRIL MALEATE [Concomitant]
     Route: 065
     Dates: end: 20070101

REACTIONS (1)
  - DRUG HYPERSENSITIVITY [None]
